FAERS Safety Report 6649720-9 (Version None)
Quarter: 2010Q1

REPORT INFORMATION
  Report Type: 
  Country: None (occurrence: None)
  Receive Date: 20100324
  Receipt Date: 20100324
  Transmission Date: 20100710
  Serious: Yes (Other)
  Sender: FDA-Public Use
  Company Number: None

PATIENT
  Age: 4 Year
  Sex: Male
  Weight: 17.2367 kg

DRUGS (1)
  1. SINGULAIR [Suspect]
     Indication: ASTHMA
     Dosage: 5 MG DAILY PO MONTH
     Route: 048
     Dates: start: 20100201, end: 20100307

REACTIONS (5)
  - ABDOMINAL DISCOMFORT [None]
  - ABNORMAL BEHAVIOUR [None]
  - AGGRESSION [None]
  - MALAISE [None]
  - OPPOSITIONAL DEFIANT DISORDER [None]
